FAERS Safety Report 19187957 (Version 1)
Quarter: 2021Q2

REPORT INFORMATION
  Report Type: Spontaneous
  Country: DK (occurrence: DK)
  Receive Date: 20210427
  Receipt Date: 20210427
  Transmission Date: 20210717
  Serious: Yes (Life-Threatening, Hospitalization, Other)
  Sender: FDA-Public Use
  Company Number: DK-GLAXOSMITHKLINE-DK2021092005

PATIENT
  Age: 88 Year
  Sex: Male

DRUGS (5)
  1. CEFUROXIM [Suspect]
     Active Substance: CEFUROXIME
     Indication: ANTIBIOTIC THERAPY
     Dosage: UNK
  2. MEROPENEM. [Suspect]
     Active Substance: MEROPENEM
     Indication: ANTIBIOTIC THERAPY
     Dosage: UNK
  3. VANCOMYCIN [Suspect]
     Active Substance: VANCOMYCIN
     Indication: CLOSTRIDIUM DIFFICILE INFECTION
     Dosage: UNK
  4. DICLOXACILLIN [Suspect]
     Active Substance: DICLOXACILLIN
     Indication: ANTIBIOTIC THERAPY
     Dosage: UNK
  5. TRIMOPAN [TRIMETHOPRIM] [Suspect]
     Active Substance: TRIMETHOPRIM
     Indication: ANTIBIOTIC THERAPY
     Dosage: UNK

REACTIONS (2)
  - Drug ineffective [Unknown]
  - Clostridium difficile infection [Recovered/Resolved]
